FAERS Safety Report 21015587 (Version 1)
Quarter: 2022Q2

REPORT INFORMATION
  Report Type: Spontaneous
  Country: US (occurrence: US)
  Receive Date: 20220628
  Receipt Date: 20220628
  Transmission Date: 20220721
  Serious: No
  Sender: FDA-Public Use
  Company Number: US-PFIZER INC-202200840420

PATIENT
  Age: 13 Year
  Sex: Male
  Weight: 42.18 kg

DRUGS (1)
  1. GENOTROPIN [Suspect]
     Active Substance: SOMATROPIN
     Indication: Short stature homeobox gene mutation
     Dosage: ALTERNATES BETWEEN 1 MG ONE NIGHT THEN 1.2 MG THE NEXT NIGHT
     Dates: start: 2019

REACTIONS (1)
  - Device leakage [Unknown]

NARRATIVE: CASE EVENT DATE: 20220601
